FAERS Safety Report 6258096-0 (Version None)
Quarter: 2009Q3

REPORT INFORMATION
  Report Type: 
  Country: None (occurrence: None)
  Receive Date: 20090702
  Receipt Date: 20090618
  Transmission Date: 20100115
  Serious: Yes (Hospitalization)
  Sender: FDA-Public Use
  Company Number: DSJ-2009-06797

PATIENT
  Age: 56 Year
  Sex: Male
  Weight: 57.6 kg

DRUGS (7)
  1. OLMESARTAN MEDOXOMIL [Suspect]
     Indication: ESSENTIAL HYPERTENSION
     Dosage: 20 MG (20 MG, 1 IN 1 D), PER ORAL; 10 MG (10 MG, 1 IN 1 D), PER ORAL
     Route: 048
     Dates: start: 20060114, end: 20060616
  2. OLMESARTAN MEDOXOMIL [Suspect]
     Indication: ESSENTIAL HYPERTENSION
     Dosage: 20 MG (20 MG, 1 IN 1 D), PER ORAL; 10 MG (10 MG, 1 IN 1 D), PER ORAL
     Route: 048
     Dates: start: 20060617, end: 20070511
  3. OLMESARTAN MEDOXOMIL [Suspect]
     Indication: ESSENTIAL HYPERTENSION
     Dosage: 20 MG (20 MG, 1 IN 1 D), PER ORAL; 10 MG (10 MG, 1 IN 1 D), PER ORAL
     Route: 048
     Dates: start: 20071222
  4. NOVORAPID INSULIN (INSULIN ASPART) (INSULIN ASPART) [Concomitant]
  5. NOVOLIN N (INSULIN HUMAN INJECTION, ISOPHANE) (INSULIN HUMAN INJECTION [Concomitant]
  6. EUGLUCON (GLIBENCLAMIDE) (GLIBENCLAMIDE) [Concomitant]
  7. NOVOLIN 30R (INSULIN INJECTION, BIPHASIC) (INSULIN INJECTION, BIPHASIC [Concomitant]

REACTIONS (4)
  - CEREBRAL ARTERY OCCLUSION [None]
  - DEPRESSION [None]
  - ORTHOSTATIC HYPOTENSION [None]
  - TRANSIENT ISCHAEMIC ATTACK [None]
